FAERS Safety Report 6426326-8 (Version None)
Quarter: 2009Q4

REPORT INFORMATION
  Report Type: 
  Country: None (occurrence: None)
  Receive Date: 20091104
  Receipt Date: 20091026
  Transmission Date: 20100525
  Serious: Yes (Hospitalization)
  Sender: FDA-Public Use
  Company Number: US-AMGEN-QUU371046

PATIENT
  Age: 64 Year
  Sex: Female

DRUGS (4)
  1. ARANESP [Suspect]
     Indication: ANAEMIA OF MALIGNANT DISEASE
     Route: 058
  2. TAXOL [Concomitant]
  3. CARBOPLATIN [Concomitant]
  4. UNSPECIFIED RADIATION THERAPY [Concomitant]

REACTIONS (5)
  - DEHYDRATION [None]
  - ELECTROLYTE IMBALANCE [None]
  - MENTAL STATUS CHANGES [None]
  - NAUSEA [None]
  - VOMITING [None]
